FAERS Safety Report 23952067 (Version 1)
Quarter: 2024Q2

REPORT INFORMATION
  Report Type: Spontaneous
  Country: US (occurrence: None)
  Receive Date: 20240606
  Receipt Date: 20240606
  Transmission Date: 20240716
  Serious: No
  Sender: FDA-Public Use
  Company Number: None

PATIENT
  Age: 10 Year
  Sex: Female
  Weight: 74 kg

DRUGS (2)
  1. NOVOLOG [Suspect]
     Active Substance: INSULIN ASPART
     Indication: Type 1 diabetes mellitus
     Dosage: OTHER FREQUENCY : UP TO 10 TIMES/DAY;?
     Route: 058
     Dates: start: 20180926, end: 20230906
  2. HUMALOG [Suspect]
     Active Substance: INSULIN LISPRO
     Indication: Type 1 diabetes mellitus
     Dosage: OTHER FREQUENCY : UP TO 10 TIMES/DAY;?
     Route: 058
     Dates: start: 20230906

REACTIONS (1)
  - Therapeutic product ineffective [None]

NARRATIVE: CASE EVENT DATE: 20240522
